FAERS Safety Report 21788618 (Version 12)
Quarter: 2025Q4

REPORT INFORMATION
  Report Type: Report from Study
  Country: CA (occurrence: CA)
  Receive Date: 20221228
  Receipt Date: 20251209
  Transmission Date: 20260118
  Serious: Yes (Other)
  Sender: TAKEDA
  Company Number: CA-TAKEDA-2022TUS101883

PATIENT
  Age: 30 Year
  Sex: Male

DRUGS (7)
  1. VEDOLIZUMAB [Suspect]
     Active Substance: VEDOLIZUMAB
     Indication: Colitis ulcerative
     Dosage: 300 MILLIGRAM
  2. VEDOLIZUMAB [Suspect]
     Active Substance: VEDOLIZUMAB
     Dosage: 300 MILLIGRAM
  3. VEDOLIZUMAB [Suspect]
     Active Substance: VEDOLIZUMAB
     Dosage: 300 MILLIGRAM
  4. VEDOLIZUMAB [Suspect]
     Active Substance: VEDOLIZUMAB
     Dosage: 300 MILLIGRAM
  5. VEDOLIZUMAB [Suspect]
     Active Substance: VEDOLIZUMAB
     Dosage: 300 MILLIGRAM
  6. PENTASA [Concomitant]
     Active Substance: MESALAMINE
     Dosage: 4 GRAM, QD
     Dates: start: 202011
  7. PENTASA [Concomitant]
     Active Substance: MESALAMINE
     Dosage: UNK

REACTIONS (13)
  - Colitis ulcerative [Unknown]
  - Haematochezia [Unknown]
  - Rectal haemorrhage [Recovered/Resolved]
  - Bowel movement irregularity [Unknown]
  - Frequent bowel movements [Unknown]
  - Anal pruritus [Unknown]
  - Mucous stools [Unknown]
  - Abdominal discomfort [Unknown]
  - Stress at work [Unknown]
  - Family stress [Unknown]
  - Rash erythematous [Unknown]
  - Anal fissure [Unknown]
  - Back pain [Unknown]

NARRATIVE: CASE EVENT DATE: 20221204
